FAERS Safety Report 12729792 (Version 15)
Quarter: 2017Q2

REPORT INFORMATION
  Report Type: Spontaneous
  Country: US (occurrence: US)
  Receive Date: 20160909
  Receipt Date: 20170413
  Transmission Date: 20170830
  Serious: Yes (Hospitalization)
  Sender: FDA-Public Use
  Company Number: US-PFIZER INC-2016378359

PATIENT
  Age: 72 Year
  Sex: Male
  Weight: 107.9 kg

DRUGS (17)
  1. AMLODIPINE [Concomitant]
     Active Substance: AMLODIPINE BESYLATE
     Dosage: UNK
  2. SUTENT [Suspect]
     Active Substance: SUNITINIB MALATE
     Indication: METASTATIC RENAL CELL CARCINOMA
     Dosage: 50 MG, CYCLIC (28 DAYS ON/14 DAYS OFF)
     Dates: start: 20160817, end: 20160831
  3. SUTENT [Suspect]
     Active Substance: SUNITINIB MALATE
     Dosage: 37.5 MG, CYCLIC (28 DAYS ON/14 DAYS OFF)
     Dates: start: 20160801, end: 20160831
  4. SUTENT [Suspect]
     Active Substance: SUNITINIB MALATE
     Dosage: 37.5 MG, CYCLIC (28 DAYS ON/14 DAYS OFF)
     Dates: start: 20161005
  5. GABAPENTIN. [Concomitant]
     Active Substance: GABAPENTIN
     Indication: PARAESTHESIA
     Dosage: 600 MG, DAILY (300 MG 2-DAY)
     Dates: start: 2011
  6. FISH OIL [Concomitant]
     Active Substance: FISH OIL
     Indication: RENAL DISORDER
  7. S-ADENOSYLMETHIONINE SULFATE P-TOLUENESULFONATE [Concomitant]
     Active Substance: ADEMETIONINE SULFATE TOSILATE
     Indication: ARTHROPATHY
  8. COLCHICINE. [Concomitant]
     Active Substance: COLCHICINE
     Indication: GOUT
     Dosage: UNK
  9. S-ADENOSYLMETHIONINE SULFATE P-TOLUENESULFONATE [Concomitant]
     Active Substance: ADEMETIONINE SULFATE TOSILATE
     Indication: ARTHRITIS
     Dosage: 400 MG, UNK
     Dates: start: 2004
  10. HYDROCHLOROTHIAZIDE. [Concomitant]
     Active Substance: HYDROCHLOROTHIAZIDE
     Dosage: UNK
  11. SUTENT [Suspect]
     Active Substance: SUNITINIB MALATE
     Dosage: 50 MG, CYCLIC; (28 DAYS AND OFF FOR 14 DAYS)
     Dates: start: 20160817
  12. FISH OIL [Concomitant]
     Active Substance: FISH OIL
     Indication: CARDIAC DISORDER
     Dosage: 1200 MG, 1X/DAY
     Route: 048
     Dates: start: 2000
  13. NYSTATIN. [Concomitant]
     Active Substance: NYSTATIN
     Dosage: UNK, AS NEEDED
     Route: 048
     Dates: start: 20160901
  14. OMEPRAZOLE. [Concomitant]
     Active Substance: OMEPRAZOLE
     Indication: GASTROOESOPHAGEAL REFLUX DISEASE
     Dosage: 20 MG, AS NEEDED; (ONCE A DAY/ON AND OFF DOES NOT TAKE CONTINUOUSLY)
     Dates: start: 2004
  15. NATURE-THROID [Concomitant]
     Active Substance: THYROID, PORCINE
     Indication: THYROID DISORDER
     Dosage: 81.5 MG, 1X/DAY
     Dates: start: 201602
  16. GABAPENTIN. [Concomitant]
     Active Substance: GABAPENTIN
     Dosage: 300 MG, 2X/DAY
  17. VITAMIN C [Concomitant]
     Active Substance: ASCORBIC ACID
     Indication: GOUT
     Dosage: UNK

REACTIONS (26)
  - Stomatitis [Recovered/Resolved]
  - Diarrhoea [Not Recovered/Not Resolved]
  - Vision blurred [Recovered/Resolved]
  - Lip dry [Unknown]
  - Chapped lips [Unknown]
  - Yellow skin [Recovered/Resolved]
  - Glossodynia [Unknown]
  - Eye swelling [Unknown]
  - Eye pain [Unknown]
  - Hypertension [Recovered/Resolved]
  - Lacrimation increased [Unknown]
  - Headache [Recovered/Resolved]
  - Alopecia [Unknown]
  - Arthralgia [Unknown]
  - Hyperhidrosis [Recovered/Resolved]
  - Gait disturbance [Recovered/Resolved]
  - Gout [Unknown]
  - Joint swelling [Unknown]
  - Pyrexia [Recovered/Resolved]
  - Neoplasm progression [Not Recovered/Not Resolved]
  - Glossitis [Unknown]
  - Lip pain [Unknown]
  - Dizziness [Recovered/Resolved]
  - Drug dispensing error [Unknown]
  - Rash [Unknown]
  - Disorientation [Recovered/Resolved]

NARRATIVE: CASE EVENT DATE: 2016
